FAERS Safety Report 23447281 (Version 3)
Quarter: 2024Q1

REPORT INFORMATION
  Report Type: Spontaneous
  Country: US (occurrence: US)
  Receive Date: 20240126
  Receipt Date: 20240327
  Transmission Date: 20240409
  Serious: Yes (Other)
  Sender: FDA-Public Use
  Company Number: US-BEH-2024167852

PATIENT
  Age: 33 Year
  Sex: Male

DRUGS (3)
  1. HUMATE-P [Suspect]
     Active Substance: HUMAN COAGULATION FACTOR VIII/VON WILLEBRAND FACTOR COMPLEX
     Indication: Von Willebrand^s disease
     Dosage: 6810 INTERNATIONAL UNIT, TIW
     Route: 042
     Dates: start: 201511
  2. HEPARIN [Concomitant]
     Active Substance: HEPARIN SODIUM
  3. KESIMPTA [Concomitant]
     Active Substance: OFATUMUMAB

REACTIONS (5)
  - Haemarthrosis [Recovered/Resolved]
  - Epistaxis [Unknown]
  - Arthralgia [Unknown]
  - Haemarthrosis [Unknown]
  - Epistaxis [Unknown]

NARRATIVE: CASE EVENT DATE: 20240101
